FAERS Safety Report 5352168-0 (Version None)
Quarter: 2007Q2

REPORT INFORMATION
  Report Type: 
  Country: None (occurrence: None)
  Receive Date: 20070606
  Receipt Date: 20070523
  Transmission Date: 20071010
  Serious: Yes (Death)
  Sender: FDA-Public Use
  Company Number: 012960

PATIENT
  Sex: Male

DRUGS (1)
  1. PRIALT [Suspect]
     Indication: PAIN
     Dosage: 0.05 UG; ONCE/HOUR, INTRATHECAL
     Route: 037
     Dates: start: 20061113

REACTIONS (3)
  - DIZZINESS [None]
  - HEADACHE [None]
  - PULMONARY HAEMORRHAGE [None]
